FAERS Safety Report 25079743 (Version 1)
Quarter: 2025Q1

REPORT INFORMATION
  Report Type: Spontaneous
  Country: CA (occurrence: CA)
  Receive Date: 20250314
  Receipt Date: 20250314
  Transmission Date: 20250408
  Serious: Yes (Hospitalization, Other)
  Sender: MERCK SHARP & DOHME LLC
  Company Number: CA-009507513-2263845

PATIENT
  Age: 62 Year
  Sex: Female

DRUGS (1)
  1. KEYTRUDA [Suspect]
     Active Substance: PEMBROLIZUMAB
     Route: 065

REACTIONS (5)
  - Asthenia [Recovering/Resolving]
  - Blood pressure decreased [Unknown]
  - General physical health deterioration [Unknown]
  - Pneumonia [Unknown]
  - Vomiting [Unknown]
